FAERS Safety Report 24696054 (Version 1)
Quarter: 2024Q4

REPORT INFORMATION
  Report Type: Spontaneous
  Country: CA (occurrence: CA)
  Receive Date: 20241204
  Receipt Date: 20241204
  Transmission Date: 20250114
  Serious: Yes (Other)
  Sender: BRISTOL-MYERS SQUIBB COMPANY
  Company Number: CA-BRISTOL-MYERS SQUIBB COMPANY-2024-179946

PATIENT
  Age: 43 Year
  Sex: Female
  Weight: 96 kg

DRUGS (88)
  1. ORENCIA [Suspect]
     Active Substance: ABATACEPT
     Indication: Rheumatoid arthritis
  2. ACETAMINOPHEN\CODEINE PHOSPHATE [Concomitant]
     Active Substance: ACETAMINOPHEN\CODEINE PHOSPHATE
     Indication: Rheumatoid arthritis
  3. ACTEMRA [Concomitant]
     Active Substance: TOCILIZUMAB
     Indication: Rheumatoid arthritis
     Route: 058
  4. ACTEMRA [Concomitant]
     Active Substance: TOCILIZUMAB
  5. ACTEMRA [Concomitant]
     Active Substance: TOCILIZUMAB
  6. ACTEMRA [Concomitant]
     Active Substance: TOCILIZUMAB
  7. ACTEMRA [Concomitant]
     Active Substance: TOCILIZUMAB
  8. ACTEMRA [Concomitant]
     Active Substance: TOCILIZUMAB
  9. ADALIMUMAB [Concomitant]
     Active Substance: ADALIMUMAB
     Indication: Rheumatoid arthritis
     Route: 058
  10. ADALIMUMAB [Concomitant]
     Active Substance: ADALIMUMAB
  11. ADALIMUMAB [Concomitant]
     Active Substance: ADALIMUMAB
     Route: 058
  12. AIMOVIG [Concomitant]
     Active Substance: ERENUMAB\ERENUMAB-AOOE
     Indication: Rheumatoid arthritis
  13. AIMOVIG [Concomitant]
     Active Substance: ERENUMAB\ERENUMAB-AOOE
     Indication: Migraine
  14. BERINERT [Concomitant]
     Active Substance: HUMAN C1-ESTERASE INHIBITOR
     Indication: Product used for unknown indication
  15. BETAMETHASONE [Concomitant]
     Active Substance: BETAMETHASONE
     Indication: Product used for unknown indication
  16. BOTULINUM TOXIN TYPE A [Concomitant]
     Active Substance: BOTULINUM TOXIN TYPE A
     Indication: Product used for unknown indication
     Route: 030
  17. BUPRENORPHINE [Concomitant]
     Active Substance: BUPRENORPHINE
     Indication: Product used for unknown indication
  18. CALCIUM ASCORBATE [Concomitant]
     Active Substance: CALCIUM ASCORBATE
     Indication: Product used for unknown indication
  19. CANDESARTAN [Concomitant]
     Active Substance: CANDESARTAN
     Indication: Rheumatoid arthritis
  20. CANDESARTAN [Concomitant]
     Active Substance: CANDESARTAN
     Indication: Migraine
     Route: 048
  21. CELECOXIB [Concomitant]
     Active Substance: CELECOXIB
     Indication: Product used for unknown indication
  22. CELECOXIB [Concomitant]
     Active Substance: CELECOXIB
  23. CETIRIZINE [Concomitant]
     Active Substance: CETIRIZINE HYDROCHLORIDE
     Indication: Rheumatoid arthritis
     Route: 048
  24. CETIRIZINE [Concomitant]
     Active Substance: CETIRIZINE HYDROCHLORIDE
     Route: 048
  25. CETIRIZINE [Concomitant]
     Active Substance: CETIRIZINE HYDROCHLORIDE
  26. CETIRIZINE [Concomitant]
     Active Substance: CETIRIZINE HYDROCHLORIDE
  27. CHOLECALCIFEROL [Concomitant]
     Active Substance: CHOLECALCIFEROL
     Indication: Product used for unknown indication
  28. CIMZIA [Concomitant]
     Active Substance: CERTOLIZUMAB PEGOL
     Indication: Rheumatoid arthritis
     Route: 058
  29. CIMZIA [Concomitant]
     Active Substance: CERTOLIZUMAB PEGOL
     Indication: Psoriasis
  30. CODEINE [Concomitant]
     Active Substance: CODEINE
     Indication: Rheumatoid arthritis
  31. CORTISONE ACETATE [Concomitant]
     Active Substance: CORTISONE ACETATE
     Indication: Rheumatoid arthritis
  32. COSENTYX [Concomitant]
     Active Substance: SECUKINUMAB
     Indication: Psoriatic arthropathy
  33. CYCLOBENZAPRINE [Concomitant]
     Active Substance: CYCLOBENZAPRINE
     Indication: Product used for unknown indication
  34. DESOXIMETASONE [Concomitant]
     Active Substance: DESOXIMETASONE
     Indication: Rheumatoid arthritis
     Route: 048
  35. DESOXIMETASONE [Concomitant]
     Active Substance: DESOXIMETASONE
  36. DESOXIMETASONE [Concomitant]
     Active Substance: DESOXIMETASONE
     Route: 058
  37. DICLOFENAC [Concomitant]
     Active Substance: DICLOFENAC
     Indication: Product used for unknown indication
  38. DOMPERIDONE [Concomitant]
     Active Substance: DOMPERIDONE
     Indication: Product used for unknown indication
  39. ERELZI [Concomitant]
     Active Substance: ETANERCEPT-SZZS
     Indication: Rheumatoid arthritis
     Route: 058
  40. ERGOCALCIFEROL [Concomitant]
     Active Substance: ERGOCALCIFEROL
     Indication: Product used for unknown indication
  41. FINACEA [Concomitant]
     Active Substance: AZELAIC ACID
     Indication: Product used for unknown indication
  42. FLUMETHASONE PIVALATE [Concomitant]
     Active Substance: FLUMETHASONE PIVALATE
     Indication: Product used for unknown indication
     Route: 058
  43. FLUTICASONE [Concomitant]
     Active Substance: FLUTICASONE
     Indication: Product used for unknown indication
  44. FOLIC ACID [Concomitant]
     Active Substance: FOLIC ACID
     Indication: Rheumatoid arthritis
  45. FOLIC ACID [Concomitant]
     Active Substance: FOLIC ACID
     Route: 048
  46. FOLIC ACID [Concomitant]
     Active Substance: FOLIC ACID
  47. FOLIC ACID [Concomitant]
     Active Substance: FOLIC ACID
  48. FOSAMAX [Concomitant]
     Active Substance: ALENDRONATE SODIUM
     Indication: Rheumatoid arthritis
  49. GOLD SODIUM THIOMALATE [Concomitant]
     Active Substance: GOLD SODIUM THIOMALATE
     Indication: Product used for unknown indication
     Route: 030
  50. HYDROMORPHONE HYDROCHLORIDE [Concomitant]
     Active Substance: HYDROMORPHONE HYDROCHLORIDE
     Indication: Product used for unknown indication
  51. HYDROXYCHLOROQUINE [Concomitant]
     Active Substance: HYDROXYCHLOROQUINE
     Indication: Rheumatoid arthritis
     Route: 048
  52. HYDROXYCHLOROQUINE [Concomitant]
     Active Substance: HYDROXYCHLOROQUINE
     Route: 048
  53. HYDROXYCHLOROQUINE [Concomitant]
     Active Substance: HYDROXYCHLOROQUINE
     Route: 048
  54. INFLIXIMAB [Concomitant]
     Active Substance: INFLIXIMAB
     Indication: Rheumatoid arthritis
  55. LAMOTRIGINE [Concomitant]
     Active Substance: LAMOTRIGINE
     Indication: Product used for unknown indication
     Route: 048
  56. LAMOTRIGINE [Concomitant]
     Active Substance: LAMOTRIGINE
     Route: 048
  57. LAMOTRIGINE [Concomitant]
     Active Substance: LAMOTRIGINE
  58. LEFLUNOMIDE [Concomitant]
     Active Substance: LEFLUNOMIDE
     Indication: Rheumatoid arthritis
     Route: 048
  59. LEFLUNOMIDE [Concomitant]
     Active Substance: LEFLUNOMIDE
     Route: 048
  60. MAGNESIUM HYDROXIDE [Concomitant]
     Active Substance: MAGNESIUM HYDROXIDE
     Indication: Product used for unknown indication
  61. METHOTREXATE [Concomitant]
     Active Substance: METHOTREXATE
     Indication: Rheumatoid arthritis
     Route: 048
  62. METHOTREXATE [Concomitant]
     Active Substance: METHOTREXATE
     Route: 048
  63. METHYLPREDNISOLONE [Concomitant]
     Active Substance: METHYLPREDNISOLONE
     Indication: Product used for unknown indication
  64. MINOCYCLINE [Concomitant]
     Active Substance: MINOCYCLINE HYDROCHLORIDE
     Indication: Product used for unknown indication
  65. MYRBETRIQ [Concomitant]
     Active Substance: MIRABEGRON
     Indication: Product used for unknown indication
  66. MYRBETRIQ [Concomitant]
     Active Substance: MIRABEGRON
     Route: 048
  67. NAPROXEN [Concomitant]
     Active Substance: NAPROXEN
     Indication: Product used for unknown indication
  68. NUCALA [Concomitant]
     Active Substance: MEPOLIZUMAB
     Indication: Product used for unknown indication
  69. OTEZLA [Concomitant]
     Active Substance: APREMILAST
     Indication: Product used for unknown indication
  70. OXYCODONE [Concomitant]
     Active Substance: OXYCODONE
     Indication: Product used for unknown indication
  71. PANTOPRAZOLE [Concomitant]
     Active Substance: PANTOPRAZOLE
     Indication: Product used for unknown indication
  72. PHENYLEPHRINE HYDROCHLORIDE [Concomitant]
     Active Substance: PHENYLEPHRINE HYDROCHLORIDE
     Indication: Rheumatoid arthritis
     Route: 030
  73. PHOSPHORUS [Concomitant]
     Active Substance: PHOSPHORUS
     Indication: Product used for unknown indication
  74. RITUXIMAB [Concomitant]
     Active Substance: RITUXIMAB
     Indication: Rheumatoid arthritis
     Route: 043
  75. RITUXIMAB [Concomitant]
     Active Substance: RITUXIMAB
     Route: 058
  76. RITUXIMAB [Concomitant]
     Active Substance: RITUXIMAB
  77. RITUXIMAB [Concomitant]
     Active Substance: RITUXIMAB
     Route: 043
  78. SULFASALAZINE [Concomitant]
     Active Substance: SULFASALAZINE
     Indication: Rheumatoid arthritis
     Route: 048
  79. SULFASALAZINE [Concomitant]
     Active Substance: SULFASALAZINE
     Route: 048
  80. SULFASALAZINE [Concomitant]
     Active Substance: SULFASALAZINE
  81. SULFASALAZINE [Concomitant]
     Active Substance: SULFASALAZINE
     Route: 048
  82. SULFASALAZINE [Concomitant]
     Active Substance: SULFASALAZINE
     Route: 048
  83. SULFASALAZINE [Concomitant]
     Active Substance: SULFASALAZINE
     Route: 058
  84. SULFASALAZINE [Concomitant]
     Active Substance: SULFASALAZINE
     Route: 048
  85. SULFASALAZINE [Concomitant]
     Active Substance: SULFASALAZINE
     Route: 048
  86. SULFASALAZINE [Concomitant]
     Active Substance: SULFASALAZINE
     Route: 048
  87. XELJANZ [Concomitant]
     Active Substance: TOFACITINIB CITRATE
     Indication: Rheumatoid arthritis
  88. TRIAMCINOLONE [Concomitant]
     Active Substance: TRIAMCINOLONE
     Indication: Product used for unknown indication

REACTIONS (65)
  - Abdominal pain upper [Unknown]
  - Anti-cyclic citrullinated peptide antibody positive [Unknown]
  - Arthralgia [Unknown]
  - Asthenia [Unknown]
  - Back injury [Unknown]
  - Blepharospasm [Unknown]
  - Blister [Unknown]
  - Breast cancer stage III [Unknown]
  - Bursitis [Unknown]
  - C-reactive protein increased [Unknown]
  - Confusional state [Unknown]
  - Depression [Unknown]
  - Dizziness [Unknown]
  - Drug hypersensitivity [Unknown]
  - Drug intolerance [Unknown]
  - Dry mouth [Unknown]
  - Duodenal ulcer perforation [Unknown]
  - Epilepsy [Unknown]
  - Facet joint syndrome [Unknown]
  - Fibromyalgia [Unknown]
  - Folliculitis [Unknown]
  - Gait inability [Unknown]
  - Gastrooesophageal reflux disease [Unknown]
  - General physical health deterioration [Unknown]
  - Glossodynia [Unknown]
  - Helicobacter infection [Unknown]
  - Hepatic enzyme increased [Unknown]
  - Hypercholesterolaemia [Unknown]
  - Hypertension [Unknown]
  - Hypoaesthesia [Unknown]
  - Impaired healing [Unknown]
  - Infusion related reaction [Unknown]
  - Infusion site reaction [Unknown]
  - Irritable bowel syndrome [Unknown]
  - Liver function test increased [Unknown]
  - Lung disorder [Unknown]
  - Muscle injury [Unknown]
  - Muscle spasms [Unknown]
  - Muscular weakness [Unknown]
  - Musculoskeletal pain [Unknown]
  - Nasopharyngitis [Unknown]
  - Neck pain [Unknown]
  - Night sweats [Unknown]
  - Obesity [Unknown]
  - Onychomadesis [Unknown]
  - Osteoarthritis [Unknown]
  - Paraesthesia [Unknown]
  - Pemphigus [Unknown]
  - Peripheral swelling [Unknown]
  - Peripheral venous disease [Unknown]
  - Pneumonia [Unknown]
  - Product quality issue [Unknown]
  - Psoriatic arthropathy [Unknown]
  - Rheumatoid arthritis [Unknown]
  - Sleep disorder [Unknown]
  - Stomatitis [Unknown]
  - Synovitis [Unknown]
  - Systemic lupus erythematosus [Unknown]
  - Taste disorder [Unknown]
  - Therapeutic product effect decreased [Unknown]
  - Treatment failure [Unknown]
  - Type 2 diabetes mellitus [Unknown]
  - Urticaria [Unknown]
  - Wheezing [Unknown]
  - Wound infection [Unknown]
